FAERS Safety Report 20118873 (Version 1)
Quarter: 2021Q4

REPORT INFORMATION
  Report Type: Spontaneous
  Country: ES (occurrence: ES)
  Receive Date: 20211126
  Receipt Date: 20211126
  Transmission Date: 20220303
  Serious: Yes (Other)
  Sender: FDA-Public Use
  Company Number: None

PATIENT
  Age: 87 Year
  Sex: Female

DRUGS (2)
  1. SINEMET CR [Suspect]
     Active Substance: CARBIDOPA\LEVODOPA
     Indication: Parkinson^s disease
     Dosage: 50MG/20MG, PROLONGED RELEASE TABLETS, 100 TABLETS, DOSE RECEIVED 5 DOSES FORM IN TOTAL
     Route: 048
     Dates: start: 20210412, end: 20210412
  2. XADAGO [Suspect]
     Active Substance: SAFINAMIDE MESYLATE
     Indication: Parkinson^s disease
     Dosage: 100 MG FILM-COATED TABLETS, 30 TABLET, DOSE RECEIVED 500MG TOTAL
     Route: 048
     Dates: start: 20210412, end: 20210412

REACTIONS (4)
  - Accidental overdose [Recovered/Resolved]
  - Language disorder [Recovered/Resolved]
  - Product administration error [Recovered/Resolved]
  - Hypotension [Recovered/Resolved]

NARRATIVE: CASE EVENT DATE: 20210412
